FAERS Safety Report 17495531 (Version 6)
Quarter: 2020Q2

REPORT INFORMATION
  Report Type: Spontaneous
  Country: US (occurrence: US)
  Receive Date: 20200304
  Receipt Date: 20200610
  Transmission Date: 20200713
  Serious: No
  Sender: FDA-Public Use
  Company Number: US-PFIZER INC-2020097076

PATIENT
  Age: 12 Year
  Sex: Female

DRUGS (2)
  1. GENOTROPIN [Suspect]
     Active Substance: SOMATROPIN
     Dosage: 1.8 MG, DAILY
     Dates: start: 20161110
  2. GENOTROPIN [Suspect]
     Active Substance: SOMATROPIN
     Dosage: 1.8 MG (1.8MG 6 DAYS A WEEK)
     Dates: start: 20161110

REACTIONS (4)
  - Device use issue [Unknown]
  - Nasopharyngitis [Unknown]
  - Product dose omission [Unknown]
  - Device issue [Unknown]
